FAERS Safety Report 7725333-2 (Version None)
Quarter: 2011Q3

REPORT INFORMATION
  Report Type: 
  Country: None (occurrence: None)
  Receive Date: 20110829
  Receipt Date: 20110818
  Transmission Date: 20111222
  Serious: Yes (Hospitalization)
  Sender: FDA-Public Use
  Company Number: LEO-2011-00689

PATIENT
  Sex: Female
  Weight: 97 kg

DRUGS (5)
  1. SUMATRIPTAN (SUMATRIPTAN) [Concomitant]
  2. HEPARIN [Suspect]
     Indication: DEEP VEIN THROMBOSIS
     Dosage: 10000 IU (10000 IU, PRN WHEN INR {2.0, SUBCUTANEOUS
     Route: 058
  3. WARFARIN SODIUM [Suspect]
     Indication: DEEP VEIN THROMBOSIS
     Dosage: 10 TO 50 MG/DAY (10 TO 50 MG PER DAY BASED ON INR), ORAL
     Route: 048
  4. ENOXAPARIN [Suspect]
     Indication: DEEP VEIN THROMBOSIS
     Dosage: PRN - FULL DOSE WHEN INR {2.0, SUBCUTANEOUS
     Route: 058
  5. INNOHEP [Suspect]
     Indication: DEEP VEIN THROMBOSIS
     Dosage: PRN - FULL DOSE WHEN INR {2.0, SUBCUTANEOUS
     Route: 058

REACTIONS (1)
  - DEEP VEIN THROMBOSIS [None]
